FAERS Safety Report 12965750 (Version 3)
Quarter: 2017Q1

REPORT INFORMATION
  Report Type: Spontaneous
  Country: GB (occurrence: GB)
  Receive Date: 20161122
  Receipt Date: 20170111
  Transmission Date: 20170428
  Serious: Yes (Hospitalization, Other)
  Sender: FDA-Public Use
  Company Number: GB-TAKEDA-2016MPI010011

PATIENT
  Age: 79 Year
  Sex: Female
  Weight: 76 kg

DRUGS (34)
  1. VELCADE [Suspect]
     Active Substance: BORTEZOMIB
     Indication: PLASMA CELL MYELOMA
     Dosage: 2.25 MG, UNK
     Route: 058
     Dates: start: 20151201, end: 20160301
  2. DIHYDROCODEINE [Concomitant]
     Active Substance: DIHYDROCODEINE
     Indication: ARTHRALGIA
     Dosage: UNK, QID
     Route: 048
     Dates: start: 20150225
  3. FERROUS FUMARATE [Concomitant]
     Active Substance: FERROUS FUMARATE
     Indication: IRON DEFICIENCY
     Dosage: 210 MG, BID
     Route: 048
     Dates: start: 2010
  4. CO-DYDRAMOL [Concomitant]
     Active Substance: ACETAMINOPHEN\DIHYDROCODEINE
     Indication: ARTHRALGIA
     Dosage: UNK, QID
     Route: 048
     Dates: start: 2015
  5. DALTEPARIN [Concomitant]
     Active Substance: DALTEPARIN
     Dosage: 5000 IU, QD
     Route: 058
     Dates: start: 20160308, end: 20160315
  6. FUROSEMIDE. [Concomitant]
     Active Substance: FUROSEMIDE
     Indication: OEDEMA PERIPHERAL
     Dosage: 40 MG, QD
     Route: 048
     Dates: start: 20160202
  7. TAZOCIN [Concomitant]
     Active Substance: PIPERACILLIN SODIUM\TAZOBACTAM SODIUM
     Indication: SEPSIS
     Dosage: 4.5 G, UNK
     Route: 042
     Dates: start: 20160307, end: 20160307
  8. SODIUM CHLORIDE. [Concomitant]
     Active Substance: SODIUM CHLORIDE
     Indication: SEPSIS
     Dosage: 1000 ML, UNK
     Route: 042
     Dates: start: 20160308, end: 20160308
  9. CO-AMOXICLAVE [Concomitant]
     Active Substance: AMOXICILLIN\CLAVULANATE POTASSIUM
     Indication: INFECTION PROPHYLAXIS
     Dosage: 625 MG, TID
     Route: 048
     Dates: start: 20151228, end: 20151231
  10. PREDNISONE. [Suspect]
     Active Substance: PREDNISONE
     Indication: PLASMA CELL MYELOMA
     Dosage: 105 MG, UNK
     Route: 048
     Dates: start: 20151202, end: 20151204
  11. PARACETAMOL [Concomitant]
     Active Substance: ACETAMINOPHEN
     Indication: ARTHRALGIA
     Dosage: 1 G, UNK
     Route: 048
     Dates: start: 20160101
  12. LANSOPRAZOLE. [Concomitant]
     Active Substance: LANSOPRAZOLE
     Indication: PROPHYLAXIS AGAINST GASTROINTESTINAL ULCER
     Dosage: 30 MG, QD
     Route: 048
     Dates: start: 2005
  13. DALTEPARIN [Concomitant]
     Active Substance: DALTEPARIN
     Indication: THROMBOSIS PROPHYLAXIS
     Dosage: 5000 IU, QD
     Route: 058
     Dates: start: 20160101, end: 20160104
  14. DEXAMETHASONE. [Suspect]
     Active Substance: DEXAMETHASONE
     Indication: PLASMA CELL MYELOMA
     Dosage: 20 MG, UNK
     Route: 048
     Dates: start: 20151201, end: 20151201
  15. PREDNISONE. [Suspect]
     Active Substance: PREDNISONE
     Dosage: 105 MG, UNK
     Route: 048
     Dates: start: 20160114, end: 20160116
  16. PREDNISONE. [Suspect]
     Active Substance: PREDNISONE
     Dosage: 105 MG, UNK
     Route: 048
     Dates: start: 20160224, end: 20160226
  17. DARATUMUMAB [Suspect]
     Active Substance: DARATUMUMAB
     Indication: PLASMA CELL MYELOMA
     Dosage: 1220 MG, UNK
     Route: 042
     Dates: start: 20151201, end: 20151229
  18. PARACETAMOL [Concomitant]
     Active Substance: ACETAMINOPHEN
     Indication: PNEUMONIA
     Dosage: 1 G, QID
     Route: 048
     Dates: start: 2005, end: 20160101
  19. PARACETAMOL [Concomitant]
     Active Substance: ACETAMINOPHEN
     Indication: SEPSIS
     Dosage: 1 G, UNK
     Route: 042
     Dates: start: 20160307, end: 20160307
  20. DOXAZOSIN [Concomitant]
     Active Substance: DOXAZOSIN\DOXAZOSIN MESYLATE
     Indication: HYPERTENSION
     Dosage: 1 G, QD
     Route: 048
  21. SEPTRIN [Concomitant]
     Active Substance: SULFAMETHOXAZOLE\TRIMETHOPRIM
     Indication: INFECTION PROPHYLAXIS
     Dosage: 480 MG, QD
     Route: 048
     Dates: start: 201602
  22. VELCADE [Suspect]
     Active Substance: BORTEZOMIB
     Dosage: 2.25 MG, UNK
     Route: 058
     Dates: start: 20160405, end: 20161129
  23. MELPHALAN [Suspect]
     Active Substance: MELPHALAN
     Dosage: 8 MG, UNK
     Route: 048
     Dates: start: 20160223, end: 20160226
  24. ALLOPURINOL. [Concomitant]
     Active Substance: ALLOPURINOL
     Indication: GOUT
     Dosage: 30 MG, QD
     Route: 048
     Dates: start: 20151201
  25. BENDROFLUMETHIAZIDE [Concomitant]
     Active Substance: BENDROFLUMETHIAZIDE
     Indication: HYPERTENSION
     Dosage: 5 MG, QD
     Route: 048
     Dates: start: 201512
  26. MELPHALAN [Suspect]
     Active Substance: MELPHALAN
     Dosage: 12 MG, UNK
     Route: 048
     Dates: start: 20160113, end: 20160116
  27. PERINDOPRIL [Concomitant]
     Active Substance: PERINDOPRIL
     Indication: HYPERTENSION
     Dosage: 8 MG, QD
     Route: 048
     Dates: end: 20160108
  28. TAZOCIN [Concomitant]
     Active Substance: PIPERACILLIN SODIUM\TAZOBACTAM SODIUM
     Dosage: 4.5 G, UNK
     Route: 042
     Dates: start: 20160316, end: 20160316
  29. LACTULOSE. [Concomitant]
     Active Substance: LACTULOSE
     Indication: CONSTIPATION
     Dosage: 15 MG, BID
     Route: 048
     Dates: start: 20150225
  30. TAZOCIN [Concomitant]
     Active Substance: PIPERACILLIN SODIUM\TAZOBACTAM SODIUM
     Dosage: 4.5 G, TID
     Route: 042
     Dates: start: 20160308, end: 20160315
  31. ACICLOVIR [Concomitant]
     Active Substance: ACYCLOVIR
     Indication: ANTIVIRAL PROPHYLAXIS
     Dosage: 400 MG, QD
     Route: 048
     Dates: start: 20151201
  32. DARATUMUMAB [Suspect]
     Active Substance: DARATUMUMAB
     Dosage: 1220 MG, UNK
     Route: 042
  33. MELPHALAN [Suspect]
     Active Substance: MELPHALAN
     Indication: PLASMA CELL MYELOMA
     Dosage: 16 MG, UNK
     Route: 048
     Dates: start: 20151201, end: 20151204
  34. AMLODIPINE [Concomitant]
     Active Substance: AMLODIPINE BESYLATE
     Indication: HYPERTENSION
     Dosage: 5 MG, QD
     Route: 048

REACTIONS (6)
  - Arthralgia [Unknown]
  - Anaemia [Recovered/Resolved]
  - Sepsis [Unknown]
  - Oedema peripheral [Unknown]
  - Pneumonia [Unknown]
  - Eye pruritus [Unknown]

NARRATIVE: CASE EVENT DATE: 20151201
